FAERS Safety Report 7076177-9 (Version None)
Quarter: 2010Q4

REPORT INFORMATION
  Report Type: 
  Country: None (occurrence: None)
  Receive Date: 20101101
  Receipt Date: 20100802
  Transmission Date: 20110411
  Serious: Yes (Hospitalization, Other)
  Sender: FDA-Public Use
  Company Number: US-BAYER-201013297NA

PATIENT
  Age: 20 Year
  Sex: Female
  Weight: 75 kg

DRUGS (3)
  1. YAZ [Suspect]
     Indication: CONTRACEPTION
     Route: 048
     Dates: start: 20090121
  2. ORTHO TRI-CYCLEN [Concomitant]
     Dates: start: 20090126
  3. LORTAB [Concomitant]
     Indication: PAIN
     Dosage: 1 TABLET EVERY 6 HOURS
     Route: 048

REACTIONS (11)
  - ABDOMINAL PAIN [None]
  - ABDOMINAL PAIN LOWER [None]
  - ALOPECIA [None]
  - CHOLECYSTITIS CHRONIC [None]
  - CHOLELITHIASIS [None]
  - DYSPEPSIA [None]
  - ERUCTATION [None]
  - GALLBLADDER CHOLESTEROLOSIS [None]
  - ILEUS [None]
  - PANCREATITIS [None]
  - PELVIC INFLAMMATORY DISEASE [None]
